FAERS Safety Report 9232211 (Version 1)
Quarter: 2013Q2

REPORT INFORMATION
  Report Type: Report from Study
  Country: US (occurrence: US)
  Receive Date: 20130415
  Receipt Date: 20130415
  Transmission Date: 20140414
  Serious: Yes (Other)
  Sender: FDA-Public Use
  Company Number: US-BAXTER-2013BAX014440

PATIENT
  Sex: 0

DRUGS (7)
  1. CYCLOPHOSPHAMIDE FOR INJECTION, USP [Suspect]
     Indication: MANTLE CELL LYMPHOMA
     Dosage: DAYS 1- 3
     Route: 042
  2. BORTEZOMIB [Suspect]
     Indication: MANTLE CELL LYMPHOMA
     Dosage: DAYS 1 AND 4
     Route: 065
  3. RITUXIMAB [Suspect]
     Indication: MANTLE CELL LYMPHOMA
     Dosage: DAY 1
     Route: 042
  4. DOXORUBICIN [Suspect]
     Indication: MANTLE CELL LYMPHOMA
     Dosage: DAYS 1 - 2
  5. VINCRISTINE [Suspect]
     Indication: MANTLE CELL LYMPHOMA
     Dosage: DAY 3
     Route: 042
  6. DEXAMETHASONE [Suspect]
     Indication: MANTLE CELL LYMPHOMA
     Dosage: DAYS 1 - 4
     Route: 048
  7. G-CSF [Suspect]
     Indication: MANTLE CELL LYMPHOMA
     Route: 065

REACTIONS (1)
  - Toxicity to various agents [Unknown]
